FAERS Safety Report 5402947-6 (Version None)
Quarter: 2007Q3

REPORT INFORMATION
  Report Type: 
  Country: None (occurrence: None)
  Receive Date: 20070718
  Receipt Date: 20060922
  Transmission Date: 20080115
  Serious: Yes (Other)
  Sender: FDA-Public Use
  Company Number: 2006115135

PATIENT
  Age: 76 Year
  Sex: Male
  Weight: 109.7705 kg

DRUGS (17)
  1. CELEBREX [Suspect]
     Indication: ARTHRALGIA
     Dosage: 200 MG (200 MG, 1 IN 1 D)
     Dates: start: 20050101
  2. CELEXA [Concomitant]
  3. LOTREL [Concomitant]
  4. LIPITOR [Concomitant]
  5. COSOPT [Concomitant]
  6. XALATAN [Concomitant]
  7. AMBIEN [Concomitant]
  8. PROSCAR [Concomitant]
  9. COMBIVENT [Concomitant]
  10. ALPHAGAN [Concomitant]
  11. SPIRIVA [Concomitant]
  12. ALBUTEROL [Concomitant]
  13. GLUCOTROL [Concomitant]
  14. ACTOS [Concomitant]
  15. TETRACYCLINE [Concomitant]
  16. SAW PALMETTO (SAW PALMETTO) [Concomitant]
  17. CENTRUM (MINERALS NOS, VITAMINS NOS) [Concomitant]

REACTIONS (3)
  - ANAEMIA [None]
  - LOWER GASTROINTESTINAL HAEMORRHAGE [None]
  - PAIN [None]
